FAERS Safety Report 4968776-2 (Version None)
Quarter: 2006Q2

REPORT INFORMATION
  Report Type: 
  Country: None (occurrence: None)
  Receive Date: 20060411
  Receipt Date: 20060331
  Transmission Date: 20061013
  Serious: Yes (Hospitalization)
  Sender: FDA-Public Use
  Company Number: DE-JNJFOC-20060400758

PATIENT
  Sex: Male

DRUGS (1)
  1. TOPAMAX [Suspect]
     Route: 048

REACTIONS (1)
  - STATUS EPILEPTICUS [None]
